FAERS Safety Report 17318200 (Version 1)
Quarter: 2020Q1

REPORT INFORMATION
  Report Type: Spontaneous
  Country: DE (occurrence: DE)
  Receive Date: 20200124
  Receipt Date: 20200124
  Transmission Date: 20200409
  Serious: Yes (Other)
  Sender: FDA-Public Use
  Company Number: DE-BAUSCH-BL-2020-001489

PATIENT
  Sex: Male
  Weight: 61 kg

DRUGS (10)
  1. RITUXIMAB. [Suspect]
     Active Substance: RITUXIMAB
     Dosage: 2ND LINE, HIGH DOSE THERAPY (TEAM PROTOCOL) 1 CYCLE
     Route: 065
     Dates: start: 20150101
  2. RITUXIMAB. [Suspect]
     Active Substance: RITUXIMAB
     Dosage: FURTHER LINES, RITUXIMAB/ GEMCITABINE/ OXALIPLATIN
     Dates: start: 20180801, end: 2019
  3. AZATHIOPRINE. [Suspect]
     Active Substance: AZATHIOPRINE
     Indication: DIFFUSE LARGE B-CELL LYMPHOMA
     Dosage: ADJUVANT, R-CHOP 6 CYCLES
     Route: 065
     Dates: start: 20140801, end: 201411
  4. RITUXIMAB. [Suspect]
     Active Substance: RITUXIMAB
     Dosage: 1ST LINE, R-DHAP 3 CYCLES
     Route: 065
     Dates: start: 20141201, end: 201412
  5. CYCLOPHOSPHAMIDE. [Suspect]
     Active Substance: CYCLOPHOSPHAMIDE
     Indication: DIFFUSE LARGE B-CELL LYMPHOMA
     Dosage: ADJUVANT, R-CHOP 6 CYCLES
     Route: 065
     Dates: start: 20140801, end: 201411
  6. THALIDOMIDE [Suspect]
     Active Substance: THALIDOMIDE
     Indication: DIFFUSE LARGE B-CELL LYMPHOMA
     Dosage: ADJUVANT, R-CHOP 6 CYCLES
     Route: 065
     Dates: start: 20140801, end: 201411
  7. DEXAMETHASONE. [Suspect]
     Active Substance: DEXAMETHASONE
     Indication: DIFFUSE LARGE B-CELL LYMPHOMA
     Dosage: ADJUVANT,R-CHOP 6CYCLES
     Route: 065
     Dates: start: 20140801, end: 201411
  8. BENDAMUSTINE [Suspect]
     Active Substance: BENDAMUSTINE
     Indication: DIFFUSE LARGE B-CELL LYMPHOMA
     Dosage: ADJUVANT, R-CHOP 6 CYCLES
     Route: 065
     Dates: start: 20140801, end: 201411
  9. RITUXIMAB. [Suspect]
     Active Substance: RITUXIMAB
     Indication: DIFFUSE LARGE B-CELL LYMPHOMA
     Dosage: ADJUVANT, R-CHOP 6 CYCLES
     Route: 065
     Dates: start: 20140801, end: 201411
  10. METHOTREXATE. [Suspect]
     Active Substance: METHOTREXATE
     Indication: DIFFUSE LARGE B-CELL LYMPHOMA
     Dosage: ADJUVANT, R-CHOP 6 CYCLES
     Route: 065
     Dates: start: 20140801, end: 201411

REACTIONS (3)
  - Haemoglobin decreased [Unknown]
  - Platelet count decreased [Unknown]
  - Blood bilirubin increased [Unknown]
